FAERS Safety Report 6306387-7 (Version None)
Quarter: 2009Q3

REPORT INFORMATION
  Report Type: 
  Country: None (occurrence: None)
  Receive Date: 20090812
  Receipt Date: 20090805
  Transmission Date: 20100115
  Serious: Yes (Hospitalization)
  Sender: FDA-Public Use
  Company Number: US-ELI_LILLY_AND_COMPANY-US200908001074

PATIENT
  Sex: Male
  Weight: 209.52 kg

DRUGS (15)
  1. BYETTA [Suspect]
     Indication: TYPE 2 DIABETES MELLITUS
     Route: 058
     Dates: start: 20081201, end: 20090101
  2. BYETTA [Suspect]
     Dosage: 10 UG, 2/D
     Route: 058
     Dates: start: 20090101, end: 20090501
  3. LANTUS [Concomitant]
     Indication: TYPE 2 DIABETES MELLITUS
     Dosage: 70 U, EACH EVENING
     Dates: start: 20090101
  4. LANTUS [Concomitant]
     Dosage: 120 U, EACH EVENING
     Dates: end: 20090101
  5. NOVOLOG [Concomitant]
     Dates: start: 20080101
  6. NOVOLOG [Concomitant]
     Dosage: 30 U, 2/D
     Dates: start: 20090301
  7. NOVOLOG [Concomitant]
     Dosage: 20 U, DAILY (1/D)
     Dates: start: 20090301
  8. GLIMEPIRIDE [Concomitant]
     Indication: TYPE 2 DIABETES MELLITUS
     Dosage: 4 MG, DAILY (1/D)
     Route: 048
  9. METFORMIN [Concomitant]
     Route: 048
     Dates: start: 20090501
  10. METFORMIN [Concomitant]
     Route: 048
     Dates: start: 20090101
  11. MORPHINE [Concomitant]
     Indication: BACK PAIN
     Dosage: UNK, 2/D
     Route: 048
  12. FUROSEMIDE [Concomitant]
     Indication: DIURETIC THERAPY
     Route: 048
  13. ENALAPRIL MALEATE [Concomitant]
     Indication: HYPERTENSION
  14. ALLOPURINOL [Concomitant]
     Indication: GOUT
  15. VYTORIN [Concomitant]
     Indication: BLOOD CHOLESTEROL
     Route: 048
     Dates: end: 20090501

REACTIONS (9)
  - ABDOMINAL PAIN [None]
  - BLOOD GLUCOSE DECREASED [None]
  - BLOOD GLUCOSE FLUCTUATION [None]
  - COLD SWEAT [None]
  - HYPERHIDROSIS [None]
  - NAUSEA [None]
  - OFF LABEL USE [None]
  - PANCREATITIS [None]
  - WEIGHT DECREASED [None]
